FAERS Safety Report 9850103 (Version 2)
Quarter: 2014Q1

REPORT INFORMATION
  Report Type: Spontaneous
  Country: DE (occurrence: DE)
  Receive Date: 20140128
  Receipt Date: 20140310
  Transmission Date: 20141002
  Serious: Yes (Other)
  Sender: FDA-Public Use
  Company Number: PHHY2014DE009252

PATIENT
  Sex: Female

DRUGS (2)
  1. LEPONEX [Suspect]
     Dosage: 75 MG (25 MG IN MORNING AND 50 MG IN EVENING), DAILY
  2. LEPONEX [Suspect]
     Dosage: UNK UKN, UNK

REACTIONS (1)
  - Oesophageal carcinoma [Unknown]
